FAERS Safety Report 25464022 (Version 1)
Quarter: 2025Q2

REPORT INFORMATION
  Report Type: Spontaneous
  Country: FR (occurrence: FR)
  Receive Date: 20250621
  Receipt Date: 20250621
  Transmission Date: 20250717
  Serious: Yes (Hospitalization, Other)
  Sender: AUROBINDO
  Company Number: FR-AFSSAPS-BR2025000358

PATIENT
  Age: 94 Year
  Sex: Female

DRUGS (2)
  1. CEFTAZIDIME [Suspect]
     Active Substance: CEFTAZIDIME
     Indication: Pseudomonal sepsis
     Dosage: 6 GRAM, ONCE A DAY (2 G 3 TIMES/DAY)
     Route: 042
     Dates: start: 20250507, end: 20250509
  2. CIPROFLOXACIN [Suspect]
     Active Substance: CIPROFLOXACIN
     Indication: Pseudomonal sepsis
     Dosage: 1500 MILLIGRAM, ONCE A DAY (750 MG/DAY)
     Route: 048
     Dates: start: 20250509, end: 20250512

REACTIONS (2)
  - Acute kidney injury [Recovering/Resolving]
  - Cholestasis [Recovering/Resolving]

NARRATIVE: CASE EVENT DATE: 20250511
